FAERS Safety Report 7293612-1 (Version None)
Quarter: 2011Q1

REPORT INFORMATION
  Report Type: 
  Country: None (occurrence: None)
  Receive Date: 20110215
  Receipt Date: 20110211
  Transmission Date: 20110831
  Serious: Yes (Death)
  Sender: FDA-Public Use
  Company Number: A0882762A

PATIENT
  Age: 67 Year
  Sex: Female
  Weight: 45.5 kg

DRUGS (1)
  1. VOTRIENT [Suspect]
     Dosage: 800MG PER DAY
     Route: 048
     Dates: start: 20100501, end: 20100920

REACTIONS (5)
  - BLOOD BILIRUBIN INCREASED [None]
  - FAECES PALE [None]
  - RENAL CANCER [None]
  - NAUSEA [None]
  - VOMITING [None]
